FAERS Safety Report 24058281 (Version 1)
Quarter: 2024Q3

REPORT INFORMATION
  Report Type: Report from Study
  Country: US (occurrence: US)
  Receive Date: 20240708
  Receipt Date: 20240708
  Transmission Date: 20241016
  Serious: Yes (Hospitalization)
  Sender: JOHNSON AND JOHNSON
  Company Number: US-JNJFOC-20240708900

PATIENT
  Age: 4 Decade
  Sex: Female

DRUGS (1)
  1. SPRAVATO [Suspect]
     Active Substance: ESKETAMINE
     Indication: Depression
     Dosage: ^84 MG, 8 TOTAL DOSES^
     Dates: start: 20240116, end: 20240220

REACTIONS (2)
  - Hospitalisation [Unknown]
  - Drug ineffective [Unknown]
